FAERS Safety Report 4937789-9 (Version None)
Quarter: 2006Q1

REPORT INFORMATION
  Report Type: 
  Country: None (occurrence: None)
  Receive Date: 20060309
  Receipt Date: 20051004
  Transmission Date: 20060701
  Serious: Yes (Hospitalization)
  Sender: FDA-Public Use
  Company Number: US-MERCK-0510USA03556

PATIENT
  Age: 58 Year
  Sex: Female
  Weight: 86 kg

DRUGS (1)
  1. VIOXX [Suspect]
     Indication: BACK PAIN
     Route: 048
     Dates: start: 20010101, end: 20040101

REACTIONS (6)
  - ANAEMIA [None]
  - ASTHENIA [None]
  - CORONARY ARTERY THROMBOSIS [None]
  - GASTROINTESTINAL DISORDER [None]
  - THROMBOSIS [None]
  - WHEEZING [None]
